FAERS Safety Report 24369533 (Version 1)
Quarter: 2024Q3

REPORT INFORMATION
  Report Type: Report from Study
  Country: US (occurrence: US)
  Receive Date: 20240927
  Receipt Date: 20240927
  Transmission Date: 20241016
  Serious: No
  Sender: ROCHE
  Company Number: US-ROCHE-3483102

PATIENT
  Age: 24 Year
  Sex: Female
  Weight: 65.77 kg

DRUGS (4)
  1. LUCENTIS [Suspect]
     Active Substance: RANIBIZUMAB
     Indication: Retinal neovascularisation
     Dosage: ANTICIPATED DATE OF TREATMENT: 19/DEC/2023 WHICH WAS INJECTED INTO RIGHT EYE
     Route: 065
     Dates: start: 202211
  2. LUCENTIS [Suspect]
     Active Substance: RANIBIZUMAB
     Indication: Vascular rupture
  3. LUCENTIS [Suspect]
     Active Substance: RANIBIZUMAB
     Indication: Retinal haemorrhage
  4. FLOVENT HFA [Concomitant]
     Active Substance: FLUTICASONE PROPIONATE
     Indication: Asthma
     Dosage: 2 PUFFS EACH MORNING
     Route: 055
     Dates: start: 2012

REACTIONS (4)
  - Ophthalmoplegia [Not Recovered/Not Resolved]
  - Photophobia [Not Recovered/Not Resolved]
  - Vision blurred [Recovered/Resolved]
  - Off label use [Unknown]

NARRATIVE: CASE EVENT DATE: 20221101
